FAERS Safety Report 16211494 (Version 4)
Quarter: 2019Q3

REPORT INFORMATION
  Report Type: Spontaneous
  Country: US (occurrence: US)
  Receive Date: 20190418
  Receipt Date: 20190701
  Transmission Date: 20191004
  Serious: Yes (Hospitalization, Other)
  Sender: FDA-Public Use
  Company Number: US-SA-2019SA104019

PATIENT
  Age: 51 Year
  Sex: Female

DRUGS (3)
  1. LANTUS SOLOSTAR [Suspect]
     Active Substance: INSULIN GLARGINE
     Indication: TYPE 2 DIABETES MELLITUS
     Dosage: 42 U, HS
  2. VITAMIN B12 [COBAMAMIDE] [Concomitant]
  3. VITAMIN D [VITAMIN D NOS] [Concomitant]
     Active Substance: VITAMIN D NOS

REACTIONS (8)
  - Dehydration [Unknown]
  - Rotator cuff syndrome [Unknown]
  - Device issue [Unknown]
  - Injection site bruising [Unknown]
  - Infection [Unknown]
  - Product dose omission [Unknown]
  - Blood glucose increased [Unknown]
  - Multiple use of single-use product [Unknown]
